FAERS Safety Report 18751930 (Version 1)
Quarter: 2021Q1

REPORT INFORMATION
  Report Type: Spontaneous
  Country: CN (occurrence: CN)
  Receive Date: 20210118
  Receipt Date: 20210118
  Transmission Date: 20210419
  Serious: Yes (Hospitalization)
  Sender: FDA-Public Use
  Company Number: CN-BAXTER-2021BAX000796

PATIENT
  Age: 17 Year
  Sex: Female
  Weight: 44.3 kg

DRUGS (20)
  1. AIDASHENG [Suspect]
     Active Substance: EPIRUBICIN HYDROCHLORIDE
     Indication: ANAPLASTIC LYMPHOMA KINASE GENE MUTATION
     Dosage: EPIRUBICIN HYDROCHLORIDE 90 MG + 5% GLUCOSE 250 ML
     Route: 041
     Dates: start: 20201202, end: 20201202
  2. VINCRISTINE SULFATE. [Suspect]
     Active Substance: VINCRISTINE SULFATE
     Indication: ANAPLASTIC LARGE-CELL LYMPHOMA
     Dosage: VINCRISTINE SULFATE + 0.9% SODIUM CHLORIDE (DOSE RE?INTRODUCED)
     Route: 041
  3. 0.9% SODIUM CHLORIDE INJECTION [Suspect]
     Active Substance: SODIUM CHLORIDE
     Dosage: 0.9% SODIUM CHLORIDE 500 ML + ETOPOSIDE 0.12 G
     Route: 041
     Dates: start: 20201202, end: 20201204
  4. METHYLPREDNISOLONE SODIUM SUCCINATE. [Suspect]
     Active Substance: METHYLPREDNISOLONE SODIUM SUCCINATE
     Indication: ANAPLASTIC LYMPHOMA KINASE GENE MUTATION
     Dosage: METHYLPREDNISONE SODIUM SUCCINATE 60 MG + 0.9% SODIUM CHLORIDE 100 ML
     Route: 041
     Dates: start: 20201202, end: 20201206
  5. ENDOXAN [Suspect]
     Active Substance: CYCLOPHOSPHAMIDE
     Indication: ANAPLASTIC LYMPHOMA KINASE GENE MUTATION
     Dosage: CYCLOPHOSPHAMIDE 1000 MG + 5% GLUCOSE 500 ML
     Route: 041
     Dates: start: 20201202, end: 20201202
  6. ENDOXAN [Suspect]
     Active Substance: CYCLOPHOSPHAMIDE
     Indication: ANAPLASTIC LARGE-CELL LYMPHOMA
     Dosage: CYCLOPHOSPHAMIDE + 5% GLUCOSE (DOSE RE?INTRODUCED)
     Route: 041
  7. 0.9% SODIUM CHLORIDE INJECTION [Suspect]
     Active Substance: SODIUM CHLORIDE
     Dosage: 0.9% SODIUM CHLORIDE + ETOPOSIDE (DOSE RE?INTRODUCED)
     Route: 041
  8. ETOPOSIDE. [Suspect]
     Active Substance: ETOPOSIDE
     Indication: ANAPLASTIC LYMPHOMA KINASE GENE MUTATION
     Dosage: ETOPOSIDE 0.12 G + 0.9% SODIUM CHLORIDE 500 ML
     Route: 041
     Dates: start: 20201202, end: 20201204
  9. ETOPOSIDE. [Suspect]
     Active Substance: ETOPOSIDE
     Indication: ANAPLASTIC LARGE-CELL LYMPHOMA
     Dosage: ETOPOSIDE + 0.9% SODIUM CHLORIDE (DOSE RE?INTRODUCED)
     Route: 041
  10. 5% GLUCOSE  INJECTION [Suspect]
     Active Substance: DEXTROSE
     Dosage: 5% GLUCOSE + CYCLOPHOSPHAMIDE (DOSE RE?INTRODUCED)
     Route: 041
  11. METHYLPREDNISOLONE SODIUM SUCCINATE. [Suspect]
     Active Substance: METHYLPREDNISOLONE SODIUM SUCCINATE
     Indication: ANAPLASTIC LARGE-CELL LYMPHOMA
     Dosage: METHYLPREDNISONE SODIUM SUCCINATE + 0.9% SODIUM CHLORIDE (DOSE RE?INTRODUCED)
     Route: 041
  12. 0.9% SODIUM CHLORIDE INJECTION [Suspect]
     Active Substance: SODIUM CHLORIDE
     Indication: MEDICATION DILUTION
     Dosage: 0.9% SODIUM CHLORIDE 100 ML + VINCRISTINE SULFATE 1.9 MG
     Route: 041
     Dates: start: 20201202, end: 20201202
  13. 0.9% SODIUM CHLORIDE INJECTION [Suspect]
     Active Substance: SODIUM CHLORIDE
     Dosage: 0.9% SODIUM CHLORIDE + VINCRISTINE SULFATE (DOSE RE?INTRODUCED)
     Route: 041
  14. 5% GLUCOSE  INJECTION [Suspect]
     Active Substance: DEXTROSE
     Dosage: 5% GLUCOSE 250 ML + EPIRUBICIN HYDROCHLORIDE 90 MG
     Route: 041
     Dates: start: 20201202, end: 20201202
  15. VINCRISTINE SULFATE. [Suspect]
     Active Substance: VINCRISTINE SULFATE
     Indication: ANAPLASTIC LYMPHOMA KINASE GENE MUTATION
     Dosage: VINCRISTINE SULFATE 1.9 MG + 0.9% SODIUM CHLORIDE 100 ML
     Route: 041
     Dates: start: 20201202, end: 20201202
  16. 0.9% SODIUM CHLORIDE INJECTION [Suspect]
     Active Substance: SODIUM CHLORIDE
     Dosage: 0.9% SODIUM CHLORIDE + METHYLPREDNISOLONE SODIUM SUCCINATE (DOSE RE?INTRODUCED)
     Route: 041
  17. 5% GLUCOSE  INJECTION [Suspect]
     Active Substance: DEXTROSE
     Indication: MEDICATION DILUTION
     Dosage: 5% GLUCOSE 500 ML+ CYCLOPHOSPHAMIDE 1000 MG
     Route: 041
     Dates: start: 20201202, end: 20201202
  18. 0.9% SODIUM CHLORIDE INJECTION [Suspect]
     Active Substance: SODIUM CHLORIDE
     Dosage: 0.9% SODIUM CHLORIDE 100 ML + METHYLPREDNISOLONE SODIUM SUCCINATE 60 MG
     Route: 041
     Dates: start: 20201202, end: 20201206
  19. 5% GLUCOSE  INJECTION [Suspect]
     Active Substance: DEXTROSE
     Dosage: 5% GLUCOSE + EPIRUBICIN HYDROCHLORIDE (DOSE RE?INTRODUCED)
     Route: 041
  20. AIDASHENG [Suspect]
     Active Substance: EPIRUBICIN HYDROCHLORIDE
     Indication: ANAPLASTIC LARGE-CELL LYMPHOMA
     Dosage: EPIRUBICIN HYDROCHLORIDE + 5% GLUCOSE (DOSE RE?INTRODUCED)
     Route: 041

REACTIONS (1)
  - Agranulocytosis [Recovering/Resolving]

NARRATIVE: CASE EVENT DATE: 20201221
